FAERS Safety Report 6302307-X (Version None)
Quarter: 2009Q3

REPORT INFORMATION
  Report Type: 
  Country: None (occurrence: None)
  Receive Date: 20090810
  Receipt Date: 20090728
  Transmission Date: 20100115
  Serious: Yes (Other)
  Sender: FDA-Public Use
  Company Number: JP-PFIZER INC-2009247840

PATIENT

DRUGS (1)
  1. CHAMPIX [Suspect]
     Dosage: FREQUENCY: 2X/DAY,

REACTIONS (3)
  - DIZZINESS [None]
  - NAUSEA [None]
  - SURGERY [None]
